FAERS Safety Report 16980784 (Version 8)
Quarter: 2022Q1

REPORT INFORMATION
  Report Type: Spontaneous
  Country: CN (occurrence: CN)
  Receive Date: 20191031
  Receipt Date: 20220105
  Transmission Date: 20220423
  Serious: Yes (Hospitalization)
  Sender: FDA-Public Use
  Company Number: CN-CELGENE-CHN-20191009297

PATIENT
  Age: 72 Year
  Sex: Male
  Weight: 65 kg

DRUGS (8)
  1. ABRAXANE [Suspect]
     Active Substance: PACLITAXEL
     Indication: Non-small cell lung cancer
     Dosage: 176.2 MILLIGRAM
     Route: 041
     Dates: start: 20191011, end: 20191011
  2. SERPLULIMAB [Suspect]
     Active Substance: SERPLULIMAB
     Indication: Non-small cell lung cancer
     Dosage: 292.5 MILLIGRAM
     Route: 041
     Dates: start: 20191011, end: 20191011
  3. CARBOPLATIN [Suspect]
     Active Substance: CARBOPLATIN
     Indication: Non-small cell lung cancer
     Dosage: 513.3 MILLIGRAM
     Route: 041
     Dates: start: 20191011, end: 20191011
  4. LANSOPRAZOLE [Concomitant]
     Active Substance: LANSOPRAZOLE
     Indication: Prophylaxis
     Dosage: 30 MILLIGRAM
     Route: 041
     Dates: start: 20191011, end: 20191011
  5. TROPISETRON HYDROCHLORIDE [Concomitant]
     Active Substance: TROPISETRON HYDROCHLORIDE
     Indication: Antiemetic supportive care
     Dosage: 5 MILLIGRAM
     Route: 041
     Dates: start: 20191011, end: 20191011
  6. INSULIN NOS [Concomitant]
     Active Substance: INSULIN NOS
     Indication: Diabetes mellitus
     Dosage: 6 IU (INTERNATIONAL UNIT)
     Route: 041
     Dates: start: 20191011, end: 20191011
  7. LEUCOGEN [Concomitant]
     Active Substance: LEUCOGEN
     Indication: Leukaemia
     Dosage: 60 MILLIGRAM
     Route: 048
     Dates: start: 20191012
  8. ONDANSETRON HYDROCHLORIDE [Concomitant]
     Active Substance: ONDANSETRON HYDROCHLORIDE
     Indication: Antiemetic supportive care
     Dosage: 24 MILLIGRAM
     Route: 048
     Dates: start: 20191012

REACTIONS (1)
  - Myocardial infarction [Recovered/Resolved]

NARRATIVE: CASE EVENT DATE: 20191014
